FAERS Safety Report 13773712 (Version 2)
Quarter: 2017Q4

REPORT INFORMATION
  Report Type: Report from Study
  Country: JP (occurrence: JP)
  Receive Date: 20170720
  Receipt Date: 20171025
  Transmission Date: 20180320
  Serious: Yes (Disabling, Other)
  Sender: FDA-Public Use
  Company Number: JP-BRISTOL-MYERS SQUIBB COMPANY-BMS-2017-064690

PATIENT
  Age: 87 Year
  Sex: Male
  Weight: 54 kg

DRUGS (11)
  1. BARACLUDE [Concomitant]
     Active Substance: ENTECAVIR
     Indication: HEPATITIS B REACTIVATION
     Dosage: 0.5 MG, QD
     Route: 048
     Dates: start: 20140226
  2. PREDONINE [Suspect]
     Active Substance: PREDNISOLONE
     Indication: RHEUMATOID ARTHRITIS
     Dosage: 5 MG, QD
     Route: 048
  3. BAYASPIRIN [Concomitant]
     Active Substance: ASPIRIN
     Indication: ANGINA PECTORIS
     Dosage: 100 MG, QD
     Route: 048
  4. MAGMITT [Concomitant]
     Active Substance: MAGNESIUM OXIDE
     Indication: CONSTIPATION
     Dosage: 330 MG, TID
     Route: 048
  5. BLOPRESS [Concomitant]
     Active Substance: CANDESARTAN CILEXETIL
     Indication: CARDIAC FAILURE
     Dosage: 8 MG, QD
     Route: 048
  6. ZYLORIC [Concomitant]
     Active Substance: ALLOPURINOL
     Indication: HYPERURICAEMIA
     Dosage: 100 MG, QD
     Route: 048
  7. ATELEC [Concomitant]
     Active Substance: CILNIDIPINE
     Indication: HYPERTENSION
     Dosage: 10 MG, QD
     Route: 048
  8. ABATACEPT [Suspect]
     Active Substance: ABATACEPT
     Indication: RHEUMATOID ARTHRITIS
     Dosage: 500 MG, UNK
     Route: 041
     Dates: start: 20110701
  9. NATRIX [Concomitant]
     Active Substance: INDAPAMIDE
     Indication: CARDIAC FAILURE
     Dosage: 1 MG, QD
     Route: 048
  10. TAKEPRON [Concomitant]
     Active Substance: LANSOPRAZOLE
     Indication: GASTRITIS
     Dosage: 15 MG, QD
     Route: 048
  11. CRESTOR [Concomitant]
     Active Substance: ROSUVASTATIN CALCIUM
     Indication: DYSLIPIDAEMIA
     Dosage: 25 MG, QD
     Route: 048

REACTIONS (1)
  - Hepatitis B reactivation [Not Recovered/Not Resolved]

NARRATIVE: CASE EVENT DATE: 20140226
